FAERS Safety Report 8520388-X (Version None)
Quarter: 2012Q3

REPORT INFORMATION
  Report Type: 
  Country: None (occurrence: None)
  Receive Date: 20120712
  Receipt Date: 20120712
  Transmission Date: 20120928
  Serious: Yes (Other)
  Sender: FDA-Public Use
  Company Number: None

PATIENT
  Age: 73 Year
  Sex: Female
  Weight: 72.5755 kg

DRUGS (1)
  1. VESICARE [Suspect]
     Indication: HYPERTONIC BLADDER
     Dosage: 1 TABLET DAILY ORAL
     Route: 048
     Dates: start: 20120213

REACTIONS (5)
  - DIARRHOEA [None]
  - NAUSEA [None]
  - HYPERHIDROSIS [None]
  - VOMITING [None]
  - ABDOMINAL PAIN UPPER [None]
